FAERS Safety Report 4361180-X (Version None)
Quarter: 2004Q2

REPORT INFORMATION
  Report Type: 
  Country: None (occurrence: None)
  Receive Date: 20040507
  Receipt Date: 20040209
  Transmission Date: 20050107
  Serious: Yes (Hospitalization)
  Sender: FDA-Public Use
  Company Number: PHEH2003US11441

PATIENT
  Age: 21 Year
  Sex: Female
  Weight: 52.2 kg

DRUGS (1)
  1. TEGRETOL [Suspect]
     Indication: BIPOLAR I DISORDER
     Dosage: ORAL
     Route: 048
     Dates: start: 19860101

REACTIONS (2)
  - HYPERSENSITIVITY [None]
  - URTICARIA [None]
